FAERS Safety Report 7425982-5 (Version None)
Quarter: 2011Q2

REPORT INFORMATION
  Report Type: 
  Country: None (occurrence: None)
  Receive Date: 20110420
  Receipt Date: 20110406
  Transmission Date: 20111010
  Serious: Yes (Other)
  Sender: FDA-Public Use
  Company Number: US-ROCHE-771398

PATIENT
  Age: 33 Year
  Sex: Male

DRUGS (5)
  1. DIAZEPAM [Suspect]
     Indication: ADJUSTMENT DISORDER WITH DEPRESSED MOOD
     Route: 065
  2. FLUOXETINE [Suspect]
     Indication: ADJUSTMENT DISORDER WITH DEPRESSED MOOD
     Route: 048
  3. FLUOXETINE [Suspect]
     Route: 048
  4. SERTRALINE [Suspect]
     Indication: ADJUSTMENT DISORDER WITH DEPRESSED MOOD
     Route: 065
  5. DIAZEPAM [Suspect]
     Dosage: DOSAGE INCREASED
     Route: 065

REACTIONS (1)
  - SEROTONIN SYNDROME [None]
